FAERS Safety Report 4651634-0 (Version None)
Quarter: 2005Q2

REPORT INFORMATION
  Report Type: 
  Country: None (occurrence: None)
  Receive Date: 20050502
  Receipt Date: 20050420
  Transmission Date: 20051028
  Serious: Yes (Hospitalization)
  Sender: FDA-Public Use
  Company Number: 2005-127640-NL

PATIENT
  Age: 75 Year
  Sex: Male
  Weight: 140 kg

DRUGS (4)
  1. ZEMURON [Suspect]
     Indication: MUSCLE RELAXANT THERAPY
     Dosage: 50 MG
     Dates: start: 20050413, end: 20050413
  2. ZEMURON [Suspect]
     Indication: MUSCLE RELAXANT THERAPY
     Dosage: 10 MG
     Dates: start: 20050413, end: 20050413
  3. NORVASC [Concomitant]
  4. ASPIRIN [Concomitant]

REACTIONS (1)
  - NEUROMUSCULAR BLOCK PROLONGED [None]
